FAERS Safety Report 4992353-0 (Version None)
Quarter: 2006Q1

REPORT INFORMATION
  Report Type: 
  Country: None (occurrence: None)
  Receive Date: 20060314
  Receipt Date: 20060214
  Transmission Date: 20060701
  Serious: Yes (Hospitalization)
  Sender: FDA-Public Use
  Company Number: 2005-01714

PATIENT
  Age: 70 Year
  Sex: Female

DRUGS (1)
  1. VELCADE [Suspect]
     Indication: MULTIPLE MYELOMA
     Dosage: IV BOLUS
     Route: 040
     Dates: start: 20050720, end: 20050701

REACTIONS (9)
  - ANAEMIA [None]
  - ASTHENIA [None]
  - COUGH [None]
  - DYSPHONIA [None]
  - DYSPNOEA [None]
  - HYPERHIDROSIS [None]
  - LUNG INFILTRATION [None]
  - PNEUMONITIS [None]
  - PYREXIA [None]
